FAERS Safety Report 25613910 (Version 1)
Quarter: 2025Q3

REPORT INFORMATION
  Report Type: Spontaneous
  Country: US (occurrence: None)
  Receive Date: 20250726
  Receipt Date: 20250726
  Transmission Date: 20251021
  Serious: Yes (Hospitalization)
  Sender: FDA-CTU
  Company Number: None

PATIENT
  Sex: Male

DRUGS (2)
  1. DEFERASIROX [Suspect]
     Active Substance: DEFERASIROX
     Indication: Sickle cell anaemia
     Dosage: 720 MG DAILY ORAL
     Route: 048
     Dates: start: 20170426
  2. DEFERASIROX [Suspect]
     Active Substance: DEFERASIROX
     Indication: Haemochromatosis

REACTIONS (3)
  - Wound [None]
  - Postoperative wound infection [None]
  - Bacterial infection [None]
